FAERS Safety Report 10513491 (Version 5)
Quarter: 2014Q4

REPORT INFORMATION
  Report Type: Spontaneous
  Country: FI (occurrence: FI)
  Receive Date: 20141013
  Receipt Date: 20141119
  Transmission Date: 20150528
  Serious: Yes (Other)
  Sender: FDA-Public Use
  Company Number: FI-ROCHE-1472547

PATIENT
  Age: 32 Year
  Sex: Female

DRUGS (7)
  1. MIRCERA [Suspect]
     Active Substance: PEGZEREPOETIN ALFA
     Indication: AUTOIMMUNE HAEMOLYTIC ANAEMIA
  2. OMEPRAZOLE. [Concomitant]
     Active Substance: OMEPRAZOLE
     Route: 065
  3. MIRCERA [Suspect]
     Active Substance: PEGZEREPOETIN ALFA
     Indication: SYSTEMIC LUPUS ERYTHEMATOSUS
     Dosage: THE LAST DOSE WAS ADMINISTERED ON 18/OCT/2014
     Route: 065
     Dates: start: 201012
  4. MIRCERA [Suspect]
     Active Substance: PEGZEREPOETIN ALFA
     Indication: GLOMERULONEPHRITIS PROLIFERATIVE
     Route: 058
     Dates: start: 201006, end: 201012
  5. BENLYSTA [Concomitant]
     Active Substance: BELIMUMAB
     Dosage: LATEST DOSE RECEIVED ON JUN-2014
     Route: 065
     Dates: end: 201409
  6. PRIMASPAN [Concomitant]
     Route: 065
  7. CALCORT [Concomitant]
     Active Substance: DEFLAZACORT

REACTIONS (3)
  - Anaemia [Recovering/Resolving]
  - Drug ineffective [Unknown]
  - Reticulocyte count decreased [Unknown]

NARRATIVE: CASE EVENT DATE: 2014
